FAERS Safety Report 4747891-2 (Version None)
Quarter: 2005Q3

REPORT INFORMATION
  Report Type: 
  Country: None (occurrence: None)
  Receive Date: 20050816
  Receipt Date: 20050802
  Transmission Date: 20060218
  Serious: Yes (Hospitalization)
  Sender: FDA-Public Use
  Company Number: 2005-BP-13338RO

PATIENT
  Age: 62 Year
  Sex: Female
  Weight: 63.5 kg

DRUGS (1)
  1. LITHIUM CITRATE [Suspect]
     Indication: DEPRESSION
     Dosage: 3750 MG X 1 (SEE TEXT, ONCE), PO
     Route: 048

REACTIONS (3)
  - DRUG DISPENSING ERROR [None]
  - HYPERVOLAEMIA [None]
  - INCORRECT DOSE ADMINISTERED [None]
